FAERS Safety Report 6809761-5 (Version None)
Quarter: 2010Q2

REPORT INFORMATION
  Report Type: 
  Country: None (occurrence: None)
  Receive Date: 20100625
  Receipt Date: 20100610
  Transmission Date: 20101027
  Serious: Yes (Death, Life-Threatening)
  Sender: FDA-Public Use
  Company Number: 7007807

PATIENT
  Age: 47 Year
  Sex: Male

DRUGS (3)
  1. REBIF [Suspect]
     Indication: RELAPSING-REMITTING MULTIPLE SCLEROSIS
     Dosage: 22 MCG, SUBCUTANEOUS
     Route: 058
     Dates: start: 19960601, end: 19970527
  2. NOVANTRONE [Suspect]
     Indication: MULTIPLE SCLEROSIS
     Dosage: 12 MG/M2, INTRAVENOUS
     Route: 042
     Dates: start: 20030425, end: 20051024
  3. COPAXONE [Suspect]
     Indication: MULTIPLE SCLEROSIS
     Dosage: SUBCUTANEOUS
     Route: 058
     Dates: start: 19980127, end: 20030415

REACTIONS (5)
  - APPARENT LIFE THREATENING EVENT [None]
  - LEG AMPUTATION [None]
  - LIPOSARCOMA [None]
  - METASTASIS [None]
  - VENA CAVA THROMBOSIS [None]
